FAERS Safety Report 12157071 (Version 1)
Quarter: 2016Q1

REPORT INFORMATION
  Report Type: Spontaneous
  Country: US (occurrence: US)
  Receive Date: 20160307
  Receipt Date: 20160307
  Transmission Date: 20160526
  Serious: No
  Sender: FDA-Public Use
  Company Number: US-BAXTER-2016BAX009489

PATIENT
  Age: 4 Day
  Sex: Male
  Weight: 1.99 kg

DRUGS (1)
  1. 5% DEXTROSE INJECTION, USP [Suspect]
     Active Substance: DEXTROSE
     Indication: PARENTERAL NUTRITION
     Route: 042

REACTIONS (2)
  - Wrong drug administered [Unknown]
  - Injection site reaction [Recovering/Resolving]
